FAERS Safety Report 18608762 (Version 1)
Quarter: 2020Q4

REPORT INFORMATION
  Report Type: Spontaneous
  Country: US (occurrence: US)
  Receive Date: 20201213
  Receipt Date: 20201213
  Transmission Date: 20210114
  Serious: Yes (Hospitalization)
  Sender: FDA-Public Use
  Company Number: US-FRESENIUS KABI-FK202013191

PATIENT
  Age: 72 Year
  Sex: Male
  Weight: 92.5 kg

DRUGS (7)
  1. PENTAMIDINE INJECTION (MANUFACTURER UNKNOWN) [Suspect]
     Active Substance: PENTAMIDINE
     Indication: PROPHYLAXIS
  2. NO DRUG NAME [Suspect]
     Active Substance: UNSPECIFIED INGREDIENT
     Indication: MYELOFIBROSIS
     Dosage: INCB050465
     Route: 048
     Dates: start: 20200910, end: 20201104
  3. RUXOLITINIB [Suspect]
     Active Substance: RUXOLITINIB
     Dosage: INCB018424
     Route: 048
     Dates: start: 202004
  4. ACICLOVIR [Concomitant]
     Active Substance: ACYCLOVIR
     Indication: PRODUCT USED FOR UNKNOWN INDICATION
     Route: 065
     Dates: start: 20200910
  5. NO DRUG NAME [Suspect]
     Active Substance: UNSPECIFIED INGREDIENT
     Dosage: INCB050465
     Route: 048
     Dates: start: 20201105
  6. RUXOLITINIB [Suspect]
     Active Substance: RUXOLITINIB
     Indication: MYELOFIBROSIS
     Dosage: INCB018424
     Route: 048
     Dates: start: 201906, end: 202004
  7. PENTAMIDINE INJECTION (MANUFACTURER UNKNOWN) [Suspect]
     Active Substance: PENTAMIDINE
     Indication: PNEUMOCYSTIS JIROVECII PNEUMONIA
     Route: 042
     Dates: start: 20201029, end: 20201029

REACTIONS (3)
  - Febrile neutropenia [Recovered/Resolved with Sequelae]
  - Adverse reaction [Unknown]
  - Intentional product use issue [Unknown]

NARRATIVE: CASE EVENT DATE: 20201102
